FAERS Safety Report 6153222-6 (Version None)
Quarter: 2009Q2

REPORT INFORMATION
  Report Type: 
  Country: None (occurrence: None)
  Receive Date: 20090413
  Receipt Date: 20090402
  Transmission Date: 20091009
  Serious: Yes (Hospitalization, Other)
  Sender: FDA-Public Use
  Company Number: US-ELI_LILLY_AND_COMPANY-US200904000575

PATIENT
  Age: 72 Year
  Sex: Male

DRUGS (11)
  1. FORTEO [Suspect]
     Indication: OSTEOPOROSIS
     Dosage: 20 UG, DAILY (1/D)
     Dates: start: 20090313
  2. AVELOX [Concomitant]
     Route: 042
  3. AVELOX [Concomitant]
     Route: 048
  4. DURAGESIC-100 [Concomitant]
     Indication: PAIN
     Dosage: 50 UG, UNK
  5. VICODIN [Concomitant]
     Indication: PAIN
     Dosage: UNK, AS NEEDED
  6. FERROUS SULFATE TAB [Concomitant]
     Dosage: 325 MG, DAILY (1/D)
  7. CALCIUM CARBONATE [Concomitant]
     Dosage: 500 MG, UNK
  8. Z-BEC [Concomitant]
     Dosage: UNK, DAILY (1/D)
  9. ERGOCALCIFEROL [Concomitant]
     Dosage: 200 MG, 2/D
  10. VITAMIN D [Concomitant]
     Dosage: 1000 MG, DAILY (1/D)
  11. ENAPRIL                            /00574901/ [Concomitant]
     Dosage: 10 MG, DAILY (1/D)

REACTIONS (2)
  - PNEUMONIA [None]
  - THROMBOSIS [None]
